FAERS Safety Report 7688615-9 (Version None)
Quarter: 2011Q3

REPORT INFORMATION
  Report Type: 
  Country: None (occurrence: None)
  Receive Date: 20110817
  Receipt Date: 20110809
  Transmission Date: 20111222
  Serious: Yes (Disabling)
  Sender: FDA-Public Use
  Company Number: JP-ALLERGAN-1108989US

PATIENT
  Age: 36 Year
  Sex: Male

DRUGS (4)
  1. MYONAL [Concomitant]
     Indication: MUSCLE SPASMS
     Dosage: 50 MG, TID
     Route: 048
     Dates: start: 20101006, end: 20110327
  2. BOTOX [Suspect]
     Indication: MUSCLE SPASMS
     Dosage: 50 UNITS, SINGLE
     Route: 030
     Dates: start: 20110328, end: 20110328
  3. BOTOX [Suspect]
     Dosage: 50 UNITS, SINGLE
     Route: 030
     Dates: start: 20101220, end: 20101220
  4. MYONAL [Concomitant]
     Dosage: 100 MG, TID
     Route: 048
     Dates: start: 20110328

REACTIONS (1)
  - JOINT DISLOCATION [None]
